FAERS Safety Report 12790158 (Version 1)
Quarter: 2016Q3

REPORT INFORMATION
  Report Type: Spontaneous
  Country: DE (occurrence: DE)
  Receive Date: 20160928
  Receipt Date: 20160928
  Transmission Date: 20161109
  Serious: Yes (Disabling)
  Sender: FDA-Public Use
  Company Number: DE-B.I. PHARMACEUTICALS,INC./RIDGEFIELD-2016-BI-59456DE

PATIENT
  Age: 71 Year
  Sex: Female
  Weight: 77 kg

DRUGS (5)
  1. SIFROL [Suspect]
     Active Substance: PRAMIPEXOLE
     Route: 048
     Dates: start: 201510
  2. LEVODOPA [Concomitant]
     Active Substance: LEVODOPA
     Indication: PARKINSON^S DISEASE
     Dosage: 4 ANZ
     Route: 048
     Dates: start: 2016
  3. SIFROL [Suspect]
     Active Substance: PRAMIPEXOLE
     Indication: PARKINSON^S DISEASE
     Dosage: 4 ANZ
     Route: 048
     Dates: end: 2014
  4. SELEGININ [Concomitant]
     Indication: PARKINSON^S DISEASE
     Dosage: 1 ANZ
     Route: 048
  5. AMANTADIN [Concomitant]
     Active Substance: AMANTADINE
     Indication: PARKINSON^S DISEASE
     Dosage: 3 ANZ
     Route: 048

REACTIONS (3)
  - Nausea [Unknown]
  - Incorrect dosage administered [Unknown]
  - Condition aggravated [Recovered/Resolved with Sequelae]

NARRATIVE: CASE EVENT DATE: 201501
